FAERS Safety Report 8605307-X (Version None)
Quarter: 2012Q3

REPORT INFORMATION
  Report Type: 
  Country: None (occurrence: None)
  Receive Date: 20120820
  Receipt Date: 20120804
  Transmission Date: 20120928
  Serious: No
  Sender: FDA-Public Use
  Company Number: US-BAYER-2012-079928

PATIENT
  Age: 79 Year
  Sex: Female
  Weight: 64.399 kg

DRUGS (6)
  1. LISINOPRIL [Concomitant]
  2. LEVOTHYROXINE SODIUM [Concomitant]
  3. ALEVE (CAPLET) [Suspect]
     Indication: ARTHRITIS
     Dosage: 2 DF, QD
     Route: 048
     Dates: start: 20120701, end: 20120802
  4. FOLIC ACID [Concomitant]
  5. BIOTIN [Concomitant]
  6. METHOTREXATE [Concomitant]

REACTIONS (1)
  - LIVER FUNCTION TEST ABNORMAL [None]
